FAERS Safety Report 8886155 (Version 5)
Quarter: 2013Q2

REPORT INFORMATION
  Report Type: Spontaneous
  Country: US (occurrence: US)
  Receive Date: 20121105
  Receipt Date: 20130422
  Transmission Date: 20140414
  Serious: Yes (Hospitalization, Disabling, Other)
  Sender: FDA-Public Use
  Company Number: US-009507513-1210USA011092

PATIENT
  Sex: Female

DRUGS (6)
  1. FOSAMAX [Suspect]
     Indication: OSTEOPENIA
     Dosage: 70 MG, QW
     Route: 048
     Dates: start: 200207, end: 200407
  2. FOSAMAX [Suspect]
     Dosage: 70 MG, QW
     Route: 048
     Dates: start: 200710, end: 201005
  3. FOSAMAX PLUS D [Suspect]
     Indication: OSTEOPENIA
     Dosage: 70 MG, QW
     Route: 048
     Dates: start: 200207, end: 200407
  4. FOSAMAX PLUS D [Suspect]
     Dosage: 70 MG, QW
     Route: 048
     Dates: start: 200710, end: 201005
  5. FOSAMAX [Suspect]
     Indication: OSTEOPENIA
     Dosage: 35 MG, UNK
     Route: 048
     Dates: start: 201005, end: 201101
  6. ACTONEL [Suspect]
     Indication: OSTEOPENIA
     Dosage: 70 MG, UNK
     Route: 048
     Dates: start: 200407, end: 200710

REACTIONS (41)
  - Femoral neck fracture [Not Recovered/Not Resolved]
  - Low turnover osteopathy [Not Recovered/Not Resolved]
  - Thyroidectomy [Unknown]
  - Fall [Unknown]
  - Open reduction of fracture [Unknown]
  - Humerus fracture [Unknown]
  - Anaemia postoperative [Recovered/Resolved]
  - Transfusion [Recovered/Resolved]
  - Hypovolaemia [Unknown]
  - Femur fracture [Recovering/Resolving]
  - Constipation [Recovered/Resolved]
  - Nausea [Recovered/Resolved]
  - Vomiting [Recovered/Resolved]
  - Head injury [Unknown]
  - Fall [Unknown]
  - Hypertension [Not Recovered/Not Resolved]
  - Blood cholesterol increased [Not Recovered/Not Resolved]
  - Fall [Unknown]
  - Hypothyroidism [Not Recovered/Not Resolved]
  - Cataract operation [Unknown]
  - Osteoarthritis [Unknown]
  - Arteriosclerosis [Not Recovered/Not Resolved]
  - Glaucoma [Not Recovered/Not Resolved]
  - Urinary tract infection [Unknown]
  - Blister [Recovered/Resolved]
  - Hypertriglyceridaemia [Not Recovered/Not Resolved]
  - Contusion [Unknown]
  - Fall [Unknown]
  - Upper respiratory tract infection [Unknown]
  - Contusion [Unknown]
  - Fall [Unknown]
  - Ligament sprain [Unknown]
  - Ligament sprain [Unknown]
  - Spinal compression fracture [Unknown]
  - Scoliosis [Unknown]
  - Rotator cuff syndrome [Unknown]
  - Dysuria [Unknown]
  - Urinary tract infection [Unknown]
  - Arthritis [Unknown]
  - Cyst [Unknown]
  - Myositis ossificans [Unknown]
